FAERS Safety Report 9212418 (Version 1)
Quarter: 2013Q2

REPORT INFORMATION
  Report Type: Spontaneous
  Country: US (occurrence: US)
  Receive Date: 20130404
  Receipt Date: 20130404
  Transmission Date: 20140414
  Serious: Yes (Other)
  Sender: FDA-Public Use
  Company Number: US-AMGEN-USASP2013019014

PATIENT
  Age: 78 Year
  Sex: Male

DRUGS (1)
  1. ENBREL [Suspect]
     Indication: RHEUMATOID ARTHRITIS
     Dosage: 50 MG, QWK
     Dates: start: 20120822

REACTIONS (8)
  - Skin cancer [Not Recovered/Not Resolved]
  - Renal disorder [Not Recovered/Not Resolved]
  - Bladder disorder [Not Recovered/Not Resolved]
  - Blood urine present [Not Recovered/Not Resolved]
  - Renal impairment [Not Recovered/Not Resolved]
  - Impaired healing [Not Recovered/Not Resolved]
  - Scab [Not Recovered/Not Resolved]
  - Fatigue [Not Recovered/Not Resolved]
